FAERS Safety Report 23897765 (Version 1)
Quarter: 2024Q2

REPORT INFORMATION
  Report Type: Spontaneous
  Country: US (occurrence: US)
  Receive Date: 20240524
  Receipt Date: 20240524
  Transmission Date: 20240716
  Serious: No
  Sender: FDA-Public Use
  Company Number: US-ALKERMES INC.-ALK-2024-000995

PATIENT
  Age: 28 Year
  Sex: Female
  Weight: 97.506 kg

DRUGS (7)
  1. VIVITROL [Suspect]
     Active Substance: NALTREXONE
     Indication: Substance abuse
     Dosage: 380 MILLIGRAM, QMO
     Route: 030
     Dates: start: 20240325
  2. VIVITROL [Suspect]
     Active Substance: NALTREXONE
     Indication: Drug use disorder
  3. VIVITROL [Suspect]
     Active Substance: NALTREXONE
     Indication: Substance use disorder
  4. ABILIFY [Concomitant]
     Active Substance: ARIPIPRAZOLE
     Indication: Depression
     Dosage: 5 MILLIGRAM, UNK
     Route: 048
     Dates: start: 20240223
  5. TRAZODONE [Concomitant]
     Active Substance: TRAZODONE HYDROCHLORIDE
     Indication: Insomnia
     Dosage: 50 MILLIGRAM,UNK
     Route: 048
     Dates: start: 20240223
  6. WELLBUTRIN [Concomitant]
     Active Substance: BUPROPION HYDROCHLORIDE
     Indication: Depression
     Dosage: 300 MILLIGRAM,UNKNOWN
     Route: 048
     Dates: start: 20240126
  7. WELLBUTRIN [Concomitant]
     Active Substance: BUPROPION HYDROCHLORIDE
     Indication: Substance abuse

REACTIONS (3)
  - Off label use [Not Recovered/Not Resolved]
  - Tooth injury [Unknown]
  - Toothache [Recovering/Resolving]

NARRATIVE: CASE EVENT DATE: 20240325
